FAERS Safety Report 4962864-2 (Version None)
Quarter: 2006Q2

REPORT INFORMATION
  Report Type: 
  Country: None (occurrence: None)
  Receive Date: 20060403
  Receipt Date: 20060403
  Transmission Date: 20061013
  Serious: Yes (Death)
  Sender: FDA-Public Use
  Company Number: None

PATIENT
  Age: 29 Year
  Sex: Female
  Weight: 68.0396 kg

DRUGS (1)
  1. ALLOPURINOL [Suspect]
     Indication: GOUT
     Dates: start: 19880701, end: 20040706

REACTIONS (11)
  - ALOPECIA [None]
  - DRUG INEFFECTIVE [None]
  - DRUG LEVEL INCREASED [None]
  - INFECTION [None]
  - LEG AMPUTATION [None]
  - PANCREATITIS [None]
  - PERITONEAL DIALYSIS [None]
  - PERITONITIS [None]
  - STEVENS-JOHNSON SYNDROME [None]
  - THROMBOSIS [None]
  - TOXIC EPIDERMAL NECROLYSIS [None]
